FAERS Safety Report 7312252-9 (Version None)
Quarter: 2011Q1

REPORT INFORMATION
  Report Type: 
  Country: None (occurrence: None)
  Receive Date: 20110224
  Receipt Date: 20110215
  Transmission Date: 20110831
  Serious: Yes (Hospitalization)
  Sender: FDA-Public Use
  Company Number: A0914731A

PATIENT
  Age: 69 Year
  Sex: Male
  Weight: 136.3 kg

DRUGS (12)
  1. MAGNESIUM GLUCONATE [Concomitant]
     Dosage: 1000MG SINGLE DOSE
     Route: 048
     Dates: start: 20100413, end: 20100413
  2. DALTEPARIN SODIUM [Suspect]
     Indication: PULMONARY EMBOLISM
     Dosage: 18000IU SINGLE DOSE
     Route: 058
     Dates: start: 20100409
  3. DEXAMETHASONE [Concomitant]
     Indication: GLIOBLASTOMA MULTIFORME
     Route: 048
     Dates: start: 20100406, end: 20100701
  4. INSULIN ASPART [Concomitant]
     Route: 058
     Dates: end: 20100701
  5. ASPIRIN [Concomitant]
     Indication: PROPHYLAXIS
     Dosage: 81MG PER DAY
     Dates: start: 20100406, end: 20100506
  6. ATENOLOL [Concomitant]
     Indication: HYPERTENSION
     Route: 048
     Dates: start: 20100412, end: 20100701
  7. COLACE [Concomitant]
     Indication: CONSTIPATION
     Dosage: 100MG TWICE PER DAY
     Route: 048
     Dates: start: 20100412, end: 20100416
  8. LEVETIRACETAM [Concomitant]
     Indication: CONVULSION PROPHYLAXIS
     Dosage: 500MG TWICE PER DAY
     Dates: start: 20100309, end: 20100701
  9. NYSTATIN [Concomitant]
     Dosage: 5ML FOUR TIMES PER DAY
     Route: 048
     Dates: start: 20100407, end: 20100416
  10. AUGMENTIN '125' [Concomitant]
     Dosage: 1TAB TWICE PER DAY
     Route: 048
     Dates: start: 20100406, end: 20100419
  11. VALACYCLOVIR [Suspect]
     Indication: HERPES VIRUS INFECTION
     Dosage: 500MG TWICE PER DAY
     Route: 048
     Dates: start: 20100405, end: 20100412
  12. TEMOZOLOMIDE [Suspect]

REACTIONS (1)
  - NEUTROPENIA [None]
